FAERS Safety Report 8795338 (Version 3)
Quarter: 2015Q3

REPORT INFORMATION
  Report Type: Report from Study
  Country: US (occurrence: US)
  Receive Date: 20120918
  Receipt Date: 20150701
  Transmission Date: 20151125
  Serious: Yes (Death)
  Sender: FDA-Public Use
  Company Number: US-ROCHE-1129238

PATIENT
  Sex: Male
  Weight: 78 kg

DRUGS (11)
  1. SANDOSTATIN [Concomitant]
     Active Substance: OCTREOTIDE ACETATE
     Route: 058
  2. AVASTIN [Suspect]
     Active Substance: BEVACIZUMAB
     Indication: GLIOBLASTOMA MULTIFORME
     Dosage: 10 MG/KG
     Route: 042
     Dates: start: 20061211, end: 20070109
  3. IRINOTECAN [Concomitant]
     Active Substance: IRINOTECAN
     Route: 065
  4. ANZEMET [Concomitant]
     Active Substance: DOLASETRON MESYLATE
     Route: 065
  5. ATROPINE. [Concomitant]
     Active Substance: ATROPINE
     Dosage: AS NEEDED
     Route: 042
  6. AVASTIN [Suspect]
     Active Substance: BEVACIZUMAB
     Route: 042
     Dates: end: 20070109
  7. DECADRON [Concomitant]
     Active Substance: DEXAMETHASONE
     Route: 065
  8. ARANESP [Concomitant]
     Active Substance: DARBEPOETIN ALFA
     Route: 065
  9. AVASTIN [Suspect]
     Active Substance: BEVACIZUMAB
     Indication: BRAIN NEOPLASM MALIGNANT
     Route: 042
  10. IRINOTECAN [Concomitant]
     Active Substance: IRINOTECAN
     Route: 065
  11. DEXAMETHASONE. [Concomitant]
     Active Substance: DEXAMETHASONE
     Route: 065

REACTIONS (3)
  - Disease progression [Fatal]
  - Off label use [Unknown]
  - Fatigue [Unknown]
